FAERS Safety Report 24608887 (Version 1)
Quarter: 2024Q4

REPORT INFORMATION
  Report Type: Spontaneous
  Country: EG (occurrence: EG)
  Receive Date: 20241112
  Receipt Date: 20241112
  Transmission Date: 20250115
  Serious: Yes (Hospitalization, Other)
  Sender: MYLAN
  Company Number: EG-MYLANLABS-2024M1100505

PATIENT
  Age: 11 Day
  Sex: Male
  Weight: 2.775 kg

DRUGS (4)
  1. VANCOMYCIN [Suspect]
     Active Substance: VANCOMYCIN
     Indication: Sepsis
     Dosage: 5.5 MILLILITER (5.5 ML OVER 1 HOUR)
     Route: 042
     Dates: start: 20241012
  2. MEROPENEM [Concomitant]
     Active Substance: MEROPENEM
     Dosage: UNK (5 MG/ ML)
     Route: 065
  3. NOREPINEPHRINE [Concomitant]
     Active Substance: NOREPINEPHRINE\NOREPINEPHRINE BITARTRATE
     Dosage: UNK
     Route: 065
     Dates: start: 20240929
  4. DOPAMINE [Concomitant]
     Active Substance: DOPAMINE HYDROCHLORIDE
     Dosage: UNK
     Route: 065
     Dates: start: 20240929

REACTIONS (2)
  - Vancomycin infusion reaction [Recovered/Resolved]
  - Incorrect product administration duration [Unknown]

NARRATIVE: CASE EVENT DATE: 20241012
